FAERS Safety Report 9590970 (Version 1)
Quarter: 2013Q4

REPORT INFORMATION
  Report Type: Spontaneous
  Country: US (occurrence: US)
  Receive Date: 20131003
  Receipt Date: 20131003
  Transmission Date: 20140711
  Serious: No
  Sender: FDA-Public Use
  Company Number: US-AMGEN-USASP2012080101

PATIENT
  Age: 67 Year
  Sex: Female

DRUGS (2)
  1. ENBREL [Suspect]
     Indication: ANKYLOSING SPONDYLITIS
     Dosage: 25 MG, Q3WK
     Dates: start: 20000601
  2. METHOTREXATE [Concomitant]
     Dosage: UNK UNK, QWK

REACTIONS (5)
  - Skin lesion [Recovered/Resolved]
  - Gingival discolouration [Recovered/Resolved]
  - Oral mucosal exfoliation [Recovered/Resolved]
  - Arthralgia [Not Recovered/Not Resolved]
  - Spinal fusion acquired [Not Recovered/Not Resolved]
